FAERS Safety Report 5837649-5 (Version None)
Quarter: 2008Q3

REPORT INFORMATION
  Report Type: 
  Country: None (occurrence: None)
  Receive Date: 20080807
  Receipt Date: 20080801
  Transmission Date: 20090109
  Serious: Yes (Death, Other)
  Sender: FDA-Public Use
  Company Number: PHHY2008GB16723

PATIENT
  Sex: Female
  Weight: 146 kg

DRUGS (6)
  1. CLOZAPINE [Suspect]
     Indication: SCHIZOPHRENIA
     Dosage: UNK
     Route: 065
     Dates: start: 20020412, end: 20040409
  2. FUROSEMIDE [Concomitant]
     Indication: CARDIAC FAILURE
     Route: 065
  3. COMBIVENT [Concomitant]
     Indication: CHRONIC OBSTRUCTIVE PULMONARY DISEASE
     Dosage: 200 UG, BID
     Route: 065
  4. SIMVASTATIN [Concomitant]
     Indication: HYPERLIPIDAEMIA
     Dosage: 40 MG, BID
     Route: 065
  5. SPIRONOLACTONE [Concomitant]
     Route: 065
  6. OMEPRAZOLE [Concomitant]
     Indication: DYSPEPSIA
     Route: 065

REACTIONS (7)
  - BRONCHIECTASIS [None]
  - BRONCHOPNEUMONIA [None]
  - CARDIAC FAILURE CONGESTIVE [None]
  - CHRONIC OBSTRUCTIVE PULMONARY DISEASE [None]
  - DYSPEPSIA [None]
  - HYPERLIPIDAEMIA [None]
  - OBESITY [None]
